FAERS Safety Report 6875776-4 (Version None)
Quarter: 2010Q3

REPORT INFORMATION
  Report Type: 
  Country: None (occurrence: None)
  Receive Date: 20100727
  Receipt Date: 20070712
  Transmission Date: 20110219
  Serious: Yes (Hospitalization, Other)
  Sender: FDA-Public Use
  Company Number: US-PFIZER INC-2006094174

PATIENT
  Sex: Male
  Weight: 48.5 kg

DRUGS (4)
  1. CELEBREX [Suspect]
     Indication: PAIN
     Dates: start: 20020901
  2. VIOXX [Suspect]
     Indication: CHEST PAIN
     Route: 048
     Dates: start: 20010401, end: 20010801
  3. VIOXX [Suspect]
     Indication: BACK PAIN
  4. PREDNISONE [Concomitant]
     Dates: start: 20020422, end: 20051228

REACTIONS (2)
  - MYOCARDIAL INFARCTION [None]
  - PULMONARY EMBOLISM [None]
